FAERS Safety Report 4314724-8 (Version None)
Quarter: 2004Q1

REPORT INFORMATION
  Report Type: 
  Country: None (occurrence: None)
  Receive Date: 20040308
  Receipt Date: 20040225
  Transmission Date: 20041129
  Serious: Yes (Life-Threatening)
  Sender: FDA-Public Use
  Company Number: 2002JP005747

PATIENT
  Age: 58 Year
  Sex: Female
  Weight: 52 kg

DRUGS (6)
  1. PROGRAF [Suspect]
     Indication: RENAL TRANSPLANT
     Dosage: 5 MG, UID/QD, ORAL
     Route: 048
     Dates: start: 20001104
  2. MYCOPHENOLIC ACID [Suspect]
     Indication: RENAL TRANSPLANT
     Dosage: 750 MG, BID, ORAL
     Route: 048
     Dates: start: 20010110
  3. PREDNISOLONE [Suspect]
     Indication: RENAL TRANSPLANT
     Dosage: 5 MG, UID/QD, ORAL
     Route: 048
     Dates: start: 20001106
  4. BLOPRESS (CANDESARTAN CILEXETIL) [Concomitant]
  5. NEUER (CETRAXATE HYDROCHLORIDE) [Concomitant]
  6. FAMOTIDINE [Concomitant]

REACTIONS (2)
  - HERPES SIMPLEX [None]
  - KAPOSI'S SARCOMA [None]
